FAERS Safety Report 9102992 (Version 6)
Quarter: 2013Q2

REPORT INFORMATION
  Report Type: Spontaneous
  Country: CA (occurrence: CA)
  Receive Date: 20130218
  Receipt Date: 20130513
  Transmission Date: 20140414
  Serious: Yes (Disabling, Other)
  Sender: FDA-Public Use
  Company Number: CA-ROCHE-1190397

PATIENT
  Age: 41 Year
  Sex: Female

DRUGS (10)
  1. XOLAIR [Suspect]
     Indication: ASTHMA
     Route: 058
     Dates: start: 20130121
  2. XOLAIR [Suspect]
     Route: 065
     Dates: start: 20130205
  3. XOLAIR [Suspect]
     Route: 065
     Dates: start: 20130218, end: 20130304
  4. OXEZE [Concomitant]
  5. ALVESCO [Concomitant]
  6. DAXAS [Concomitant]
  7. SINGULAIR [Concomitant]
  8. MONTELUKAST [Concomitant]
  9. ROFLUMILAST [Concomitant]
  10. TIOTROPIUM [Concomitant]

REACTIONS (25)
  - Joint swelling [Recovering/Resolving]
  - Pyrexia [Recovering/Resolving]
  - Hyperhidrosis [Recovering/Resolving]
  - Fatigue [Recovering/Resolving]
  - Arthralgia [Recovering/Resolving]
  - Pharyngeal oedema [Not Recovered/Not Resolved]
  - Abasia [Unknown]
  - Foreign body [Unknown]
  - Musculoskeletal stiffness [Unknown]
  - Neck pain [Unknown]
  - Ear pain [Unknown]
  - Disorientation [Unknown]
  - Arthritis [Unknown]
  - Local swelling [Not Recovered/Not Resolved]
  - Myalgia [Unknown]
  - Headache [Unknown]
  - Nausea [Not Recovered/Not Resolved]
  - Vomiting [Unknown]
  - Abdominal distension [Unknown]
  - Bladder dilatation [Unknown]
  - Musculoskeletal discomfort [Unknown]
  - Oropharyngeal pain [Unknown]
  - Paraesthesia oral [Unknown]
  - Spinal pain [Unknown]
  - Dizziness [Unknown]
